FAERS Safety Report 7100223-7 (Version None)
Quarter: 2010Q4

REPORT INFORMATION
  Report Type: 
  Country: None (occurrence: None)
  Receive Date: 20101112
  Receipt Date: 20101105
  Transmission Date: 20110411
  Serious: Yes (Hospitalization)
  Sender: FDA-Public Use
  Company Number: JP-ABBOTT-10P-087-0675296-00

PATIENT
  Sex: Male
  Weight: 75 kg

DRUGS (5)
  1. HUMIRA [Suspect]
     Indication: PSORIASIS
     Route: 058
     Dates: start: 20100412, end: 20100412
  2. HUMIRA [Suspect]
     Route: 058
     Dates: start: 20100426, end: 20100903
  3. CETIRIZINE HYDROCHLORIDE [Concomitant]
     Indication: PSORIASIS
     Route: 048
  4. BETAMETHASONE BUTYRATE PROPIONATE [Concomitant]
     Indication: PSORIASIS
     Dosage: Q.S.  MIXED WITH MAXACALCITOL
     Route: 061
  5. MAXACALCITOL [Concomitant]
     Indication: PSORIASIS
     Dosage: Q.S.  MIXED WITH BETAMETHASONE BUTYRATE PROPIONATE
     Route: 061

REACTIONS (3)
  - GASTRIC ULCER HAEMORRHAGE [None]
  - HEAD DISCOMFORT [None]
  - PETECHIAE [None]
